FAERS Safety Report 5971734-2 (Version None)
Quarter: 2008Q4

REPORT INFORMATION
  Report Type: 
  Country: None (occurrence: None)
  Receive Date: 20081201
  Receipt Date: 20081126
  Transmission Date: 20090506
  Serious: Yes (Hospitalization)
  Sender: FDA-Public Use
  Company Number: FR-WYE-G02661108

PATIENT
  Age: 54 Year
  Sex: Male

DRUGS (3)
  1. RAPAMUNE [Suspect]
     Indication: PROPHYLAXIS AGAINST TRANSPLANT REJECTION
     Dosage: 6 MG; FREQUENCY UNSPECIFIED
     Route: 048
     Dates: start: 20080715, end: 20080725
  2. IMUREL [Concomitant]
     Dosage: UNKNOWN
     Route: 048
     Dates: start: 20070101
  3. CORTANCYL [Concomitant]
     Dosage: UNKNOWN
     Route: 048
     Dates: start: 20060101

REACTIONS (4)
  - APHTHOUS STOMATITIS [None]
  - INTERSTITIAL LUNG DISEASE [None]
  - LEUKOPENIA [None]
  - RENAL FAILURE ACUTE [None]
